FAERS Safety Report 7378944-0 (Version None)
Quarter: 2011Q1

REPORT INFORMATION
  Report Type: 
  Country: None (occurrence: None)
  Receive Date: 20110328
  Receipt Date: 20110323
  Transmission Date: 20110831
  Serious: Yes (Death, Other)
  Sender: FDA-Public Use
  Company Number: PHHY2011PL23459

PATIENT
  Sex: Male
  Weight: 70 kg

DRUGS (2)
  1. VEPESID [Suspect]
     Indication: LUNG NEOPLASM MALIGNANT
     Dosage: 200 MG, DAILY
     Dates: start: 20110204, end: 20110206
  2. CARBOPLATIN [Suspect]
     Indication: LUNG NEOPLASM MALIGNANT
     Dosage: 450 MG, DAILY
     Route: 042
     Dates: start: 20110204, end: 20110204

REACTIONS (2)
  - DEATH [None]
  - NEUTROPENIA [None]
